FAERS Safety Report 8802224 (Version 2)
Quarter: 2015Q2

REPORT INFORMATION
  Report Type: Report from Study
  Country: US (occurrence: US)
  Receive Date: 20120921
  Receipt Date: 20150629
  Transmission Date: 20150821
  Serious: Yes (Death)
  Sender: FDA-Public Use
  Company Number: US-ROCHE-1126320

PATIENT
  Age: 57 Year
  Sex: Male
  Weight: 83 kg

DRUGS (4)
  1. ELOXATIN [Concomitant]
     Active Substance: OXALIPLATIN
  2. 5-FLUOROURACIL [Concomitant]
     Active Substance: FLUOROURACIL
  3. ZOFRAN [Concomitant]
     Active Substance: ONDANSETRON HYDROCHLORIDE
  4. AVASTIN [Suspect]
     Active Substance: BEVACIZUMAB
     Indication: METASTATIC GASTRIC CANCER
     Route: 065

REACTIONS (3)
  - Off label use [Unknown]
  - Hypermetabolism [Unknown]
  - Death [Fatal]

NARRATIVE: CASE EVENT DATE: 20060429
